FAERS Safety Report 9441731 (Version 15)
Quarter: 2014Q1

REPORT INFORMATION
  Report Type: Report from Study
  Country: CA (occurrence: CA)
  Receive Date: 20130806
  Receipt Date: 20140325
  Transmission Date: 20141002
  Serious: Yes (Other)
  Sender: FDA-Public Use
  Company Number: CA-ROCHE-1145533

PATIENT
  Age: 63 Year
  Sex: Female
  Weight: 89.4 kg

DRUGS (11)
  1. RITUXAN [Suspect]
     Indication: RHEUMATOID ARTHRITIS
     Dosage: MOST RECENT DOSE : 15/OCT/2013
     Route: 042
     Dates: start: 20110607
  2. OXYCONTIN [Suspect]
     Indication: SCIATICA
     Route: 065
     Dates: start: 20121116, end: 201211
  3. DIPHENHYDRAMINE HCL [Concomitant]
     Indication: PREMEDICATION
     Route: 048
     Dates: start: 20110607
  4. SYNTHROID [Concomitant]
     Route: 065
  5. ARAVA [Concomitant]
     Route: 065
  6. TYLENOL [Concomitant]
     Indication: PREMEDICATION
     Route: 048
     Dates: start: 20110607
  7. METHYLPREDNISOLONE [Concomitant]
     Indication: PREMEDICATION
     Route: 042
     Dates: start: 20110607
  8. GABAPENTIN [Concomitant]
     Route: 065
  9. ACETAMINOPHEN [Concomitant]
     Route: 048
     Dates: start: 20110607
  10. MICARDIS [Concomitant]
     Route: 065
  11. TELMISARTAN [Concomitant]

REACTIONS (26)
  - Diabetes mellitus [Not Recovered/Not Resolved]
  - Dyspnoea [Unknown]
  - Gastrooesophageal reflux disease [Unknown]
  - Pain [Not Recovered/Not Resolved]
  - Cough [Not Recovered/Not Resolved]
  - Palpitations [Not Recovered/Not Resolved]
  - Chest discomfort [Not Recovered/Not Resolved]
  - Infusion related reaction [Recovered/Resolved]
  - Flushing [Recovered/Resolved]
  - Erythema [Recovered/Resolved]
  - Headache [Recovering/Resolving]
  - Ear disorder [Not Recovered/Not Resolved]
  - Sciatica [Not Recovered/Not Resolved]
  - Adverse drug reaction [Unknown]
  - Glucose urine present [Unknown]
  - Blood pressure increased [Not Recovered/Not Resolved]
  - Upper respiratory tract infection [Not Recovered/Not Resolved]
  - Oropharyngeal pain [Not Recovered/Not Resolved]
  - Pyrexia [Not Recovered/Not Resolved]
  - Hyperhidrosis [Not Recovered/Not Resolved]
  - Nasopharyngitis [Not Recovered/Not Resolved]
  - Arthralgia [Not Recovered/Not Resolved]
  - Productive cough [Not Recovered/Not Resolved]
  - Pruritus [Recovered/Resolved]
  - Blood glucose increased [Unknown]
  - Rheumatoid arthritis [Not Recovered/Not Resolved]
